FAERS Safety Report 8307797-9 (Version None)
Quarter: 2012Q2

REPORT INFORMATION
  Report Type: 
  Country: None (occurrence: None)
  Receive Date: 20120424
  Receipt Date: 20120419
  Transmission Date: 20120825
  Serious: Yes (Life-Threatening, Hospitalization)
  Sender: FDA-Public Use
  Company Number: BG-PFIZER INC-2012017631

PATIENT
  Age: 60 Year
  Sex: Male
  Weight: 84 kg

DRUGS (6)
  1. TAMSULOSIN [Concomitant]
     Indication: BENIGN PROSTATIC HYPERPLASIA
     Dosage: 0.4 MG, UNK
     Dates: start: 20120103
  2. VENOFER [Concomitant]
     Indication: ANAEMIA
     Dosage: UNK
     Dates: start: 20120111, end: 20120115
  3. DICYNONE [Concomitant]
     Indication: HAEMATOMA
     Dosage: UNK
     Dates: start: 20120106, end: 20120116
  4. AXITINIB [Suspect]
     Indication: RENAL CELL CARCINOMA
     Dosage: 10 MG, 2X/DAY
     Dates: start: 20110315, end: 20111226
  5. CIPROFLOXACIN [Concomitant]
     Indication: INFECTION PROPHYLAXIS
     Dosage: UNK
     Dates: start: 20120106, end: 20120116
  6. VENOFER [Concomitant]
     Dosage: UNK
     Dates: start: 20120121

REACTIONS (1)
  - GASTRIC ULCER [None]
